FAERS Safety Report 8318779-5 (Version None)
Quarter: 2012Q2

REPORT INFORMATION
  Report Type: 
  Country: None (occurrence: None)
  Receive Date: 20120427
  Receipt Date: 20120418
  Transmission Date: 20120825
  Serious: Yes (Death)
  Sender: FDA-Public Use
  Company Number: FR-JNJFOC-20120307415

PATIENT
  Sex: Female
  Weight: 92 kg

DRUGS (5)
  1. RIVAROXABAN [Suspect]
     Indication: PROPHYLAXIS
     Route: 048
     Dates: start: 20120130, end: 20120206
  2. RIVAROXABAN [Suspect]
     Indication: KNEE ARTHROPLASTY
     Route: 048
     Dates: start: 20120130, end: 20120206
  3. AUGMENTIN '125' [Suspect]
     Indication: PYREXIA
     Route: 048
     Dates: start: 20120207
  4. DABIGATRAN [Suspect]
     Indication: PROPHYLAXIS
     Route: 048
     Dates: start: 20120206, end: 20120210
  5. DABIGATRAN [Suspect]
     Indication: KNEE ARTHROPLASTY
     Route: 048
     Dates: start: 20120206, end: 20120210

REACTIONS (2)
  - HAEMORRHAGIC STROKE [None]
  - THROMBOCYTOPENIA [None]
